FAERS Safety Report 9158955 (Version 3)
Quarter: 2013Q3

REPORT INFORMATION
  Report Type: Spontaneous
  Country: US (occurrence: US)
  Receive Date: 20130313
  Receipt Date: 20130906
  Transmission Date: 20140515
  Serious: No
  Sender: FDA-Public Use
  Company Number: US-BIOGENIDEC-2013BI021431

PATIENT
  Age: 50 Year
  Sex: Male

DRUGS (1)
  1. TYSABRI [Suspect]
     Indication: MULTIPLE SCLEROSIS
     Route: 042
     Dates: start: 20120727

REACTIONS (15)
  - Nuclear magnetic resonance imaging abnormal [Recovered/Resolved]
  - Irritability [Recovered/Resolved]
  - Emotional distress [Recovered/Resolved]
  - Mobility decreased [Unknown]
  - Syncope [Unknown]
  - Stress at work [Recovered/Resolved]
  - Musculoskeletal stiffness [Not Recovered/Not Resolved]
  - Depression [Recovered/Resolved]
  - Depressed mood [Not Recovered/Not Resolved]
  - Muscle spasms [Not Recovered/Not Resolved]
  - Headache [Recovered/Resolved]
  - Multiple sclerosis [Not Recovered/Not Resolved]
  - Multiple sclerosis relapse [Recovered/Resolved]
  - Drug effect decreased [Unknown]
  - Malaise [Unknown]
